FAERS Safety Report 5862444-0 (Version None)
Quarter: 2008Q3

REPORT INFORMATION
  Report Type: 
  Country: None (occurrence: None)
  Receive Date: 20080826
  Receipt Date: 20080811
  Transmission Date: 20090109
  Serious: Yes (Other)
  Sender: FDA-Public Use
  Company Number: MIN-00394

PATIENT
  Age: 31 Year
  Sex: Female

DRUGS (2)
  1. MINOCYCLINE (UNK; UNK) [Suspect]
     Dosage: 50 MG BID
  2. IODINE-CONTAINING MULTIVITAMIN [Concomitant]

REACTIONS (4)
  - HYPERTHYROIDISM [None]
  - THYROID CANCER [None]
  - THYROID DISORDER [None]
  - THYROIDITIS [None]
